FAERS Safety Report 10331262 (Version 1)
Quarter: 2014Q3

REPORT INFORMATION
  Report Type: Spontaneous
  Country: US (occurrence: None)
  Receive Date: 20140721
  Receipt Date: 20140721
  Transmission Date: 20150326
  Serious: Yes (Hospitalization)
  Sender: FDA-Public Use
  Company Number: None

PATIENT
  Age: 8 Year
  Sex: Male
  Weight: 25.6 kg

DRUGS (5)
  1. CYTARABINE. [Suspect]
     Active Substance: CYTARABINE
     Route: 037
  2. METHOTREXATE [Suspect]
     Active Substance: METHOTREXATE
     Route: 037
  3. VINCRISTINE SULFATE. [Suspect]
     Active Substance: VINCRISTINE SULFATE
  4. DEXAMETHASONE. [Suspect]
     Active Substance: DEXAMETHASONE
  5. PEG/L-ASPARAGINASE [Suspect]
     Active Substance: PEGASPARGASE

REACTIONS (13)
  - Hypotension [None]
  - Tachycardia [None]
  - Nausea [None]
  - Malaise [None]
  - Pyrexia [None]
  - Pseudomonas test positive [None]
  - Intestinal perforation [None]
  - Culture positive [None]
  - Abdominal pain [None]
  - Erythema [None]
  - Gastrointestinal sounds abnormal [None]
  - Hypophagia [None]
  - Abdominal abscess [None]

NARRATIVE: CASE EVENT DATE: 20140714
